FAERS Safety Report 21966465 (Version 2)
Quarter: 2023Q1

REPORT INFORMATION
  Report Type: Spontaneous
  Country: AR (occurrence: None)
  Receive Date: 20230208
  Receipt Date: 20230221
  Transmission Date: 20230418
  Serious: Yes (Hospitalization, Other)
  Sender: FDA-Public Use
  Company Number: 2023A030173

PATIENT
  Age: 4 Year
  Sex: Male
  Weight: 13.5 kg

DRUGS (1)
  1. SELUMETINIB [Suspect]
     Active Substance: SELUMETINIB
     Indication: Neurofibroma
     Route: 048
     Dates: start: 20220915, end: 20230102

REACTIONS (2)
  - Pain [Recovered/Resolved with Sequelae]
  - Product availability issue [Unknown]

NARRATIVE: CASE EVENT DATE: 20230117
